FAERS Safety Report 21494725 (Version 3)
Quarter: 2023Q1

REPORT INFORMATION
  Report Type: Other
  Country: US (occurrence: None)
  Receive Date: 20221021
  Receipt Date: 20230127
  Transmission Date: 20230418
  Serious: Yes (Other)
  Sender: FDA-Public Use
  Company Number: US-ROCHE-3203283

PATIENT
  Age: 27 Year
  Sex: Male

DRUGS (10)
  1. RIBAVIRIN [Suspect]
     Active Substance: RIBAVIRIN
     Indication: Hepatitis C
     Route: 065
  2. INTERFERON ALFA-2B [Suspect]
     Active Substance: INTERFERON ALFA-2B
     Indication: Hepatitis C
     Route: 065
  3. GRANULOCYTE COLONY-STIMULATING FACTOR NOS [Concomitant]
     Active Substance: GRANULOCYTE COLONY-STIMULATING FACTOR NOS
     Indication: Hypogonadism
  4. ERYTHROPOIETIN [Concomitant]
     Active Substance: ERYTHROPOIETIN
     Indication: Hypogonadism
  5. TESTOSTERONE [Concomitant]
     Active Substance: TESTOSTERONE
     Indication: Hypogonadism
  6. CYCLOSPORINE [Concomitant]
     Active Substance: CYCLOSPORINE
     Indication: Immunosuppressant drug therapy
  7. HUMAN RED BLOOD CELL [Concomitant]
     Active Substance: HUMAN RED BLOOD CELL
  8. PLATELETS [Concomitant]
     Active Substance: HUMAN PLATELET, ALLOGENIC
  9. ELTROMBOPAG [Concomitant]
     Active Substance: ELTROMBOPAG
     Indication: Congenital aplastic anaemia
  10. ROMIPLOSTIM [Concomitant]
     Active Substance: ROMIPLOSTIM
     Indication: Immune thrombocytopenia

REACTIONS (2)
  - Bone marrow failure [Unknown]
  - Thrombocytopenia [Unknown]
